FAERS Safety Report 8012994-6 (Version None)
Quarter: 2011Q4

REPORT INFORMATION
  Report Type: 
  Country: None (occurrence: None)
  Receive Date: 20111229
  Receipt Date: 20111221
  Transmission Date: 20120403
  Serious: Yes (Other)
  Sender: FDA-Public Use
  Company Number: DE-B.I. PHARMACEUTICALS,INC./RIDGEFIELD-2011-DE-06894DE

PATIENT
  Sex: Male

DRUGS (5)
  1. SIMVASTATIN [Suspect]
     Dosage: 5 ANZ
     Route: 048
     Dates: start: 20111221
  2. METFORMIN HCL [Suspect]
     Dosage: 7 ANZ
     Route: 048
     Dates: start: 20111221
  3. AGGRENOX [Suspect]
     Dosage: 7 ANZ
     Route: 048
     Dates: start: 20111221
  4. ASPIRIN [Suspect]
     Dosage: 4 ANZ
     Route: 048
     Dates: start: 20111221
  5. OMEPRAZOLE [Suspect]
     Dosage: 5 ANZ
     Route: 048
     Dates: start: 20111221

REACTIONS (1)
  - MEDICATION ERROR [None]
